FAERS Safety Report 5074757-3 (Version None)
Quarter: 2006Q3

REPORT INFORMATION
  Report Type: 
  Country: None (occurrence: None)
  Receive Date: 20060804
  Receipt Date: 20060724
  Transmission Date: 20061208
  Serious: Yes (Hospitalization, Other)
  Sender: FDA-Public Use
  Company Number: 28514-1

PATIENT
  Age: 56 Year
  Sex: Male
  Weight: 79.8331 kg

DRUGS (2)
  1. LEUCOVORIN CALCIUM [Suspect]
     Indication: ENDOCRINE PANCREATIC DISORDER
     Dosage: 400MG, 200MG/M2/EVERY 2 WKS
     Dates: start: 20060502, end: 20060530
  2. LEUCOVORIN CALCIUM [Suspect]
     Indication: PANCREATIC NEOPLASM
     Dosage: 400MG, 200MG/M2/EVERY 2 WKS
     Dates: start: 20060502, end: 20060530

REACTIONS (1)
  - PYREXIA [None]
